FAERS Safety Report 25004844 (Version 1)
Quarter: 2025Q1

REPORT INFORMATION
  Report Type: Spontaneous
  Country: US (occurrence: US)
  Receive Date: 20250224
  Receipt Date: 20250224
  Transmission Date: 20250408
  Serious: No
  Sender: BAYER HEALTHCARE PHARMACEUTICALS INC.
  Company Number: US-BAYER-2025A024660

PATIENT
  Age: 45 Year
  Sex: Male

DRUGS (1)
  1. PRAZIQUANTEL [Suspect]
     Active Substance: PRAZIQUANTEL
     Indication: Hymenolepiasis
     Route: 048

REACTIONS (2)
  - Product use in unapproved indication [None]
  - Product prescribing issue [None]
